FAERS Safety Report 22340141 (Version 1)
Quarter: 2023Q2

REPORT INFORMATION
  Report Type: Spontaneous
  Country: BE (occurrence: None)
  Receive Date: 20230518
  Receipt Date: 20230518
  Transmission Date: 20230721
  Serious: Yes (Other)
  Sender: FDA-Public Use
  Company Number: BE-Merck Healthcare KGaA-9328284

PATIENT
  Age: 73 Year
  Sex: Male
  Weight: 110 kg

DRUGS (2)
  1. BAVENCIO [Suspect]
     Active Substance: AVELUMAB
     Indication: Metastatic renal cell carcinoma
     Dates: start: 202002, end: 202011
  2. AXITINIB [Suspect]
     Active Substance: AXITINIB
     Indication: Metastatic renal cell carcinoma
     Dates: start: 202002, end: 202007

REACTIONS (9)
  - Autoimmune lung disease [Unknown]
  - Adrenal insufficiency [Unknown]
  - Cortisol decreased [Unknown]
  - Disease progression [Unknown]
  - Myalgia [Unknown]
  - Fatigue [Unknown]
  - Rash [Unknown]
  - Diarrhoea [Unknown]
  - Dysphonia [Unknown]

NARRATIVE: CASE EVENT DATE: 20201101
